FAERS Safety Report 5577344-3 (Version None)
Quarter: 2007Q4

REPORT INFORMATION
  Report Type: 
  Country: None (occurrence: None)
  Receive Date: 20071228
  Receipt Date: 20071219
  Transmission Date: 20080405
  Serious: Yes (Hospitalization, Other)
  Sender: FDA-Public Use
  Company Number: US-PFIZER INC-2007106589

PATIENT
  Sex: Male
  Weight: 68 kg

DRUGS (1)
  1. GEODON [Suspect]
     Dates: start: 20070901, end: 20070901

REACTIONS (4)
  - BRAIN DAMAGE [None]
  - FEELING ABNORMAL [None]
  - MENTAL DISORDER [None]
  - RESTLESSNESS [None]
